FAERS Safety Report 21946868 (Version 1)
Quarter: 2023Q1

REPORT INFORMATION
  Report Type: Spontaneous
  Country: DE (occurrence: DE)
  Receive Date: 20230202
  Receipt Date: 20230202
  Transmission Date: 20230418
  Serious: Yes (Other)
  Sender: FDA-Public Use
  Company Number: None

PATIENT
  Weight: 2.94 kg

DRUGS (8)
  1. CYTOTEC [Suspect]
     Active Substance: MISOPROSTOL
     Indication: Labour induction
     Dosage: MULTI 1/4 TABLET (29DEC 09:35,13:50,14:50,17:50,19:10,19:20 30DEC 08:45,12:45,16:55,20:50 31DEC 3X)
     Route: 064
     Dates: start: 20181229, end: 20190101
  2. CYTOTEC [Suspect]
     Active Substance: MISOPROSTOL
     Dosage: 0.5 DF
     Route: 064
     Dates: start: 20181231, end: 20181231
  3. JONOSTERIL [CALCIUM ACETATE;MAGNESIUM ACETATE TETRAHYDRATE;POTASSIUM A [Concomitant]
     Dosage: 500 ML
     Dates: start: 20181230
  4. OXYTOCIN [Concomitant]
     Active Substance: OXYTOCIN
     Dosage: 10:18 1 ML 10:28 1 AND 2 ML + 2 ML
     Dates: start: 20181231
  5. MEPTAZINOL HYDROCHLORIDE [Concomitant]
     Active Substance: MEPTAZINOL HYDROCHLORIDE
     Dosage: 1 AMPOULE OF MEPTIDE
     Dates: start: 20181230
  6. MISOPROSTOL [Concomitant]
     Active Substance: MISOPROSTOL
     Dosage: 2 MG TOTAL
     Dates: start: 20181229, end: 20181229
  7. BUTYLSCOPOLAMINE BROMIDE [Concomitant]
     Active Substance: BUTYLSCOPOLAMINE BROMIDE
     Dosage: 1 TABLET OF BUSCOPAN
     Dates: start: 20181230
  8. BUTYLSCOPOLAMINE BROMIDE [Concomitant]
     Active Substance: BUTYLSCOPOLAMINE BROMIDE
     Dosage: 1 AMPOULE OF BUSCOPAN
     Dates: start: 20181230

REACTIONS (4)
  - Foetal exposure during delivery [Unknown]
  - Neonatal asphyxia [Unknown]
  - Cerebral haemorrhage neonatal [Unknown]
  - Oxygen saturation decreased [Unknown]

NARRATIVE: CASE EVENT DATE: 20181229
